FAERS Safety Report 18184593 (Version 3)
Quarter: 2020Q4

REPORT INFORMATION
  Report Type: Spontaneous
  Country: US (occurrence: US)
  Receive Date: 20200824
  Receipt Date: 20201218
  Transmission Date: 20210113
  Serious: No
  Sender: FDA-Public Use
  Company Number: US-SA-2020SA222633

PATIENT

DRUGS (2)
  1. DUPIXENT [Suspect]
     Active Substance: DUPILUMAB
     Indication: ASTHMA
  2. DUPIXENT [Suspect]
     Active Substance: DUPILUMAB
     Indication: DERMATITIS
     Dosage: 300 MG, QOW
     Dates: start: 202010, end: 20201123

REACTIONS (9)
  - Nausea [Unknown]
  - Skin discomfort [Unknown]
  - Headache [Recovered/Resolved]
  - Swelling face [Unknown]
  - Injection site urticaria [Unknown]
  - Condition aggravated [Unknown]
  - Erythema [Unknown]
  - Vomiting [Unknown]
  - Therapeutic response shortened [Unknown]

NARRATIVE: CASE EVENT DATE: 2020
